FAERS Safety Report 23240387 (Version 1)
Quarter: 2023Q4

REPORT INFORMATION
  Report Type: Report from Study
  Country: US (occurrence: US)
  Receive Date: 20231129
  Receipt Date: 20231129
  Transmission Date: 20240110
  Serious: Yes (Hospitalization, Other)
  Sender: FDA-Public Use
  Company Number: US-BAXTER-2023BAX036412

PATIENT
  Age: 79 Year
  Sex: Female
  Weight: 54.7 kg

DRUGS (26)
  1. DOXORUBICIN [Suspect]
     Active Substance: DOXORUBICIN
     Indication: Ovarian cancer
     Dosage: 40 MILLIGRAM/SQ. METER
     Route: 042
     Dates: start: 20230418, end: 20230418
  2. INVESTIGATIONAL PRODUCT [Suspect]
     Active Substance: INVESTIGATIONAL PRODUCT
     Indication: Ovarian cancer
     Dosage: 3 MILLIGRAM/KILOGRAM
     Route: 042
     Dates: start: 20230425, end: 20230425
  3. SODIUM CHLORIDE [Concomitant]
     Active Substance: SODIUM CHLORIDE
     Indication: Ileus
     Dosage: UNK
     Route: 065
     Dates: start: 20230426, end: 20230426
  4. ELECTROLYTES NOS [Concomitant]
     Active Substance: ELECTROLYTES NOS
     Indication: Ileus
     Dosage: UNK
     Route: 065
     Dates: start: 20230426, end: 20230426
  5. LEVOTHYROXINE [Concomitant]
     Active Substance: LEVOTHYROXINE
     Indication: Hyperthyroidism
     Dosage: ONGOING
     Route: 065
     Dates: start: 19980101
  6. POTASSIUM GLUCONATE [Concomitant]
     Active Substance: POTASSIUM GLUCONATE
     Indication: Supplementation therapy
     Dosage: UNK, START DATE: 2022, ONGOING
     Route: 065
  7. LOSARTAN [Concomitant]
     Active Substance: LOSARTAN
     Indication: Hypertension
     Dosage: ONGOING
     Route: 065
     Dates: start: 20201201
  8. CHOLECALCIFEROL [Concomitant]
     Active Substance: CHOLECALCIFEROL
     Indication: Supplementation therapy
     Dosage: ONGOING
     Route: 065
     Dates: start: 20220602
  9. PROMETHAZINE [Concomitant]
     Active Substance: PROMETHAZINE HYDROCHLORIDE
     Indication: Prophylaxis of nausea and vomiting
     Dosage: ONGOING
     Route: 065
     Dates: start: 20220610
  10. PROMETHAZINE [Concomitant]
     Active Substance: PROMETHAZINE HYDROCHLORIDE
     Indication: Ileus
  11. CALCIUM [Concomitant]
     Active Substance: CALCIUM
     Indication: Supplementation therapy
     Dosage: START DATE: APR 2022, ONGOING
     Route: 065
  12. MAGNESIUM OXIDE [Concomitant]
     Active Substance: MAGNESIUM OXIDE
     Indication: Supplementation therapy
     Dosage: ONGOING
     Route: 065
     Dates: start: 20220412
  13. PHENERGAN [Concomitant]
     Active Substance: PROMETHAZINE HYDROCHLORIDE
     Indication: Adverse event
     Dosage: ONGOING
     Route: 065
     Dates: start: 20230421
  14. OLANZAPINE [Concomitant]
     Active Substance: OLANZAPINE
     Indication: Ileus
     Dosage: ONGOING
     Route: 065
     Dates: start: 20230424
  15. ONDANSETRON HYDROCHLORIDE [Concomitant]
     Active Substance: ONDANSETRON HYDROCHLORIDE
     Dosage: UNK
     Route: 065
     Dates: start: 20230424
  16. METOCLOPRAMIDE [Concomitant]
     Active Substance: METOCLOPRAMIDE
     Indication: Ileus
     Dosage: ONGOING
     Route: 065
     Dates: start: 20230425
  17. POTASSIUM CHLORIDE [Concomitant]
     Active Substance: POTASSIUM CHLORIDE
     Indication: Hypokalaemia
     Dosage: ONGOING
     Route: 065
     Dates: start: 20230426
  18. MAGNESIUM SULFATE [Concomitant]
     Active Substance: MAGNESIUM SULFATE\MAGNESIUM SULFATE HEPTAHYDRATE
     Indication: Hypomagnesaemia
     Dosage: UNK
     Route: 065
     Dates: start: 20230426, end: 20230426
  19. ENOXAPARIN SODIUM [Concomitant]
     Active Substance: ENOXAPARIN SODIUM
     Indication: Prophylaxis
     Dosage: UNK
     Route: 065
     Dates: start: 20230426, end: 20230428
  20. ONDANSETRON [Concomitant]
     Active Substance: ONDANSETRON
     Indication: Ileus
     Dosage: UNK
     Route: 065
     Dates: start: 20230426, end: 20230429
  21. BISACODYL [Concomitant]
     Active Substance: BISACODYL
     Indication: Constipation
     Dosage: UNK
     Route: 065
     Dates: start: 20230426, end: 20230426
  22. DEXAMETHASONE [Concomitant]
     Active Substance: DEXAMETHASONE
     Indication: Ileus
     Dosage: UNK
     Route: 065
     Dates: start: 20230426, end: 20230429
  23. BACITRACIN [Concomitant]
     Active Substance: BACITRACIN
     Indication: Wound infection
     Dosage: UNK
     Route: 065
     Dates: start: 20230427, end: 20230430
  24. KETOROLAC TROMETHAMINE [Concomitant]
     Active Substance: KETOROLAC TROMETHAMINE
     Indication: Abdominal pain
     Dosage: UNK
     Route: 065
     Dates: start: 20230427, end: 20230428
  25. ALBUMIN HUMAN [Concomitant]
     Active Substance: ALBUMIN HUMAN
     Indication: Hypoalbuminaemia
     Dosage: UNK
     Route: 065
     Dates: start: 20230428, end: 20230428
  26. CALCIUM GLUCONATE [Concomitant]
     Active Substance: CALCIUM GLUCONATE
     Indication: Hypocalcaemia
     Dosage: UNK
     Route: 065
     Dates: start: 20230430, end: 20230430

REACTIONS (1)
  - Embolism [Unknown]

NARRATIVE: CASE EVENT DATE: 20230514
